FAERS Safety Report 8445495-1 (Version None)
Quarter: 2012Q2

REPORT INFORMATION
  Report Type: 
  Country: None (occurrence: None)
  Receive Date: 20120323
  Receipt Date: 20111202
  Transmission Date: 20120825
  Serious: Yes (Hospitalization)
  Sender: FDA-Public Use
  Company Number: 163-21880-11103403

PATIENT
  Age: 55 Year
  Sex: Male

DRUGS (14)
  1. REVLIMID [Suspect]
     Indication: MULTIPLE MYELOMA
     Dosage: 25 MG, 1 IN 1 D, PO; 10 MG DAILY X 28 DAYS, PO
     Route: 048
     Dates: start: 20110301
  2. REVLIMID [Suspect]
     Indication: MULTIPLE MYELOMA
     Dosage: 25 MG, 1 IN 1 D, PO; 10 MG DAILY X 28 DAYS, PO
     Route: 048
     Dates: start: 20100701, end: 20100101
  3. ASPIRIN [Concomitant]
  4. ZOCOR (VALSARTAN) [Concomitant]
  5. IMDUR [Concomitant]
  6. ASPIRIN [Concomitant]
  7. VANCOMYCIN [Concomitant]
  8. CEFTRIAXONE [Concomitant]
  9. HYDRALAZINE HYDROCHLORIDE [Concomitant]
  10. OMEPRAZOLE [Concomitant]
  11. FISH OIL [Concomitant]
  12. METOPROLOL [Concomitant]
  13. NEURONTIN [Concomitant]
  14. ALLOPURINOL [Concomitant]

REACTIONS (1)
  - ISCHAEMIC STROKE [None]
